FAERS Safety Report 16021481 (Version 1)
Quarter: 2019Q2

REPORT INFORMATION
  Report Type: Spontaneous
  Country: US (occurrence: US)
  Receive Date: 20190228
  Receipt Date: 20190228
  Transmission Date: 20190711
  Serious: Yes (Hospitalization, Other)
  Sender: FDA-Public Use
  Company Number: None

PATIENT
  Age: 51 Year
  Sex: Female
  Weight: 58.97 kg

DRUGS (11)
  1. ATIVAN [Concomitant]
     Active Substance: LORAZEPAM
  2. VISTARIL [Concomitant]
     Active Substance: HYDROXYZINE PAMOATE
  3. BIOTIN [Concomitant]
     Active Substance: BIOTIN
  4. POTASSIUM [Concomitant]
     Active Substance: POTASSIUM
  5. IBUPROFEN. [Concomitant]
     Active Substance: IBUPROFEN
  6. MAGNESIUM [Concomitant]
     Active Substance: MAGNESIUM
  7. LAMOTRAGINE [Concomitant]
     Active Substance: LAMOTRIGINE
  8. OCCIPITAL STIMULATOR [Concomitant]
  9. FENTANYL. [Suspect]
     Active Substance: FENTANYL
  10. EFFEXOR [Concomitant]
     Active Substance: VENLAFAXINE HYDROCHLORIDE
  11. ATENELOL [Concomitant]
     Active Substance: ATENOLOL

REACTIONS (3)
  - Pyrexia [None]
  - Headache [None]
  - Seizure [None]

NARRATIVE: CASE EVENT DATE: 20190225
